FAERS Safety Report 13089649 (Version 2)
Quarter: 2019Q2

REPORT INFORMATION
  Report Type: Report from Study
  Country: IT (occurrence: IT)
  Receive Date: 20170105
  Receipt Date: 20190522
  Transmission Date: 20190711
  Serious: Yes (Hospitalization)
  Sender: FDA-Public Use
  Company Number: IT-ASTELLAS-2017US000358

PATIENT
  Age: 37 Year
  Sex: Female

DRUGS (5)
  1. CATAPRESAN                         /00171102/ [Concomitant]
     Active Substance: CLONIDINE HYDROCHLORIDE
     Indication: PRODUCT USED FOR UNKNOWN INDICATION
     Dosage: UNK UNK, UNKNOWN FREQ. SCHEDULE: EV.
     Route: 065
     Dates: start: 20161206, end: 20161206
  2. FUROSEMIDE. [Concomitant]
     Active Substance: FUROSEMIDE
     Indication: PRODUCT USED FOR UNKNOWN INDICATION
     Dosage: 20 MG, UNKNOWN FREQ. SCHEDULE: EV.
     Route: 065
     Dates: start: 20161206, end: 20161206
  3. BEVACIZUMAB. [Suspect]
     Active Substance: BEVACIZUMAB
     Indication: NON-SMALL CELL LUNG CANCER
     Dosage: 1320 MG, UNKNOWN FREQ. (MOST RECENT DOSE OF BEVACIZUMAB PRIOR TO SAE WAS 16/NOV/2016)
     Route: 065
     Dates: start: 20161026, end: 20161206
  4. NIFEDICOR [Concomitant]
     Active Substance: NIFEDIPINE
     Indication: PRODUCT USED FOR UNKNOWN INDICATION
     Route: 048
     Dates: start: 20161206, end: 20161206
  5. ERLOTINIB [Suspect]
     Active Substance: ERLOTINIB
     Indication: NON-SMALL CELL LUNG CANCER
     Dosage: 100 MG, UNKNOWN FREQ. (MOST RECENT DOSE OF ERLOTINIB PRIOR TO SAE WAS 05/DEC/2016)
     Route: 065
     Dates: start: 20161026, end: 20161206

REACTIONS (1)
  - Hypertension [Recovered/Resolved]

NARRATIVE: CASE EVENT DATE: 20161206
